FAERS Safety Report 5201212-X (Version None)
Quarter: 2007Q1

REPORT INFORMATION
  Report Type: 
  Country: None (occurrence: None)
  Receive Date: 20070103
  Receipt Date: 20061221
  Transmission Date: 20070707
  Serious: Yes (Death, Congenital Anomaly)
  Sender: FDA-Public Use
  Company Number: 2006AL004014

PATIENT
  Sex: Female

DRUGS (2)
  1. FLUOXETINE [Suspect]
     Dosage: 20 MG;TRPL
     Route: 064
  2. SERTRALINE HYDROCHLORIDE [Concomitant]

REACTIONS (4)
  - CONGENITAL BRAIN DAMAGE [None]
  - DRUG EXPOSURE DURING PREGNANCY [None]
  - ENCEPHALITIS [None]
  - NEONATAL ASPHYXIA [None]
